FAERS Safety Report 9413562 (Version 1)
Quarter: 2013Q1

REPORT INFORMATION
  Report Type: Spontaneous
  Country: AU (occurrence: None)
  Receive Date: 20130315
  Receipt Date: 20130315
  Transmission Date: 20140127
  Serious: Yes (Other)
  Sender: FDA-Public Use
  Company Number: 220723

PATIENT
  Age: 65 Year
  Sex: Female
  Weight: 97 kg

DRUGS (8)
  1. LEO 43204 [Suspect]
     Indication: ACTINIC KERATOSIS
     Route: 061
     Dates: start: 20121212, end: 20121213
  2. LEO 43204 [Suspect]
     Indication: ACTINIC KERATOSIS
     Route: 061
     Dates: start: 20121212, end: 20121213
  3. LEO 43204 [Suspect]
     Route: 061
     Dates: start: 20121212, end: 20121213
  4. PARACETAMOL [Concomitant]
  5. ATENOLOL [Concomitant]
  6. SIMVASTATIN [Concomitant]
  7. FLUOROURACIL [Concomitant]
  8. PICATO [Suspect]

REACTIONS (2)
  - Bowen^s disease [None]
  - Bowen^s disease [None]
